FAERS Safety Report 16981653 (Version 1)
Quarter: 2019Q4

REPORT INFORMATION
  Report Type: Spontaneous
  Country: US (occurrence: US)
  Receive Date: 20191101
  Receipt Date: 20191101
  Transmission Date: 20200122
  Serious: Yes (Other)
  Sender: FDA-Public Use
  Company Number: US-CIPLA LTD.-2019US02386

PATIENT

DRUGS (1)
  1. GABAPENTIN. [Suspect]
     Active Substance: GABAPENTIN
     Indication: MULTIPLE SCLEROSIS
     Dosage: DOSES BETWEEN 7200 MG/DAY AND 1200 MG BID
     Route: 065

REACTIONS (3)
  - Overdose [Unknown]
  - Off label use [Unknown]
  - Product use in unapproved indication [Unknown]
